FAERS Safety Report 15671992 (Version 1)
Quarter: 2018Q4

REPORT INFORMATION
  Report Type: Report from Study
  Country: US (occurrence: US)
  Receive Date: 20181129
  Receipt Date: 20181129
  Transmission Date: 20190205
  Serious: No
  Sender: FDA-Public Use
  Company Number: US-TESARO-US-2017TSO04628

PATIENT
  Age: 83 Year
  Sex: Female

DRUGS (13)
  1. ZEJULA [Suspect]
     Active Substance: NIRAPARIB
     Dosage: 2 CAPSULES ALTERNATING DAYS WITH 1 CAPSULE ON OPPOSITE DAYS, QD
     Route: 048
     Dates: start: 20180609
  2. SENNA [Concomitant]
     Active Substance: SENNA LEAF\SENNOSIDES\SENNOSIDES A AND B
     Indication: PRODUCT USED FOR UNKNOWN INDICATION
     Dosage: UNK
  3. ZEJULA [Suspect]
     Active Substance: NIRAPARIB
     Dosage: 100 MG, QD
     Route: 048
     Dates: start: 20171205
  4. ZEJULA [Suspect]
     Active Substance: NIRAPARIB
     Dosage: 2 CAPSULE 3 TIMES PER WEEK AND 1 CAPSULE 4 DAYS PER WEEK
     Route: 048
     Dates: start: 20180212
  5. ZEJULA [Suspect]
     Active Substance: NIRAPARIB
     Indication: OVARIAN CANCER
     Dosage: UNK
     Route: 048
     Dates: start: 20171011, end: 20171031
  6. ZEJULA [Suspect]
     Active Substance: NIRAPARIB
     Dosage: 2 CAPSULES ALTERNATING DAYS WITH 1 CAPSULE ON OPPOSITE DAYS
     Route: 048
  7. ZEJULA [Suspect]
     Active Substance: NIRAPARIB
     Dosage: 200 MG, UNK
     Route: 048
  8. ZEJULA [Suspect]
     Active Substance: NIRAPARIB
     Dosage: 100 MG, QD
     Route: 048
     Dates: start: 20180530, end: 20180609
  9. VISIPAQUE [Concomitant]
     Active Substance: IODIXANOL
     Indication: PRODUCT USED FOR UNKNOWN INDICATION
     Dosage: UNK
  10. ZEJULA [Suspect]
     Active Substance: NIRAPARIB
     Dosage: 200 MG, QD
     Route: 048
  11. ELIQUIS [Concomitant]
     Active Substance: APIXABAN
     Indication: PRODUCT USED FOR UNKNOWN INDICATION
     Dosage: UNK
  12. BISOPROLOL FUMARATE. [Concomitant]
     Active Substance: BISOPROLOL FUMARATE
     Indication: PRODUCT USED FOR UNKNOWN INDICATION
     Dosage: UNK
  13. ZEJULA [Suspect]
     Active Substance: NIRAPARIB
     Dosage: 200 MG, QD
     Route: 048
     Dates: start: 20180610

REACTIONS (18)
  - Insomnia [Unknown]
  - Cellulitis [Recovering/Resolving]
  - Peripheral swelling [Not Recovered/Not Resolved]
  - Neuropathy peripheral [Unknown]
  - Contusion [Recovering/Resolving]
  - Sputum discoloured [Unknown]
  - Inappropriate schedule of product administration [Not Recovered/Not Resolved]
  - Pain in extremity [Not Recovered/Not Resolved]
  - Gait disturbance [Not Recovered/Not Resolved]
  - Arthritis [Unknown]
  - Feeling abnormal [Unknown]
  - Nasopharyngitis [Unknown]
  - Back pain [Not Recovered/Not Resolved]
  - Decreased appetite [Not Recovered/Not Resolved]
  - Gout [Unknown]
  - Cough [Not Recovered/Not Resolved]
  - Blood pressure increased [Unknown]
  - Choking [Unknown]

NARRATIVE: CASE EVENT DATE: 20180620
